FAERS Safety Report 15496488 (Version 2)
Quarter: 2019Q1

REPORT INFORMATION
  Report Type: Spontaneous
  Country: US (occurrence: US)
  Receive Date: 20181012
  Receipt Date: 20190117
  Transmission Date: 20190417
  Serious: Yes (Disabling, Other)
  Sender: FDA-Public Use
  Company Number: US-INSYS THERAPEUTICS, INC-INS201809-000358

PATIENT
  Sex: Female

DRUGS (9)
  1. FENTORA [Suspect]
     Active Substance: FENTANYL CITRATE
  2. SUBSYS [Suspect]
     Active Substance: FENTANYL
     Indication: MUSCULOSKELETAL PAIN
  3. SUBSYS [Suspect]
     Active Substance: FENTANYL
     Indication: NECK PAIN
  4. HYDROCODONE [Suspect]
     Active Substance: HYDROCODONE
  5. SUBSYS [Suspect]
     Active Substance: FENTANYL
     Indication: PAIN
  6. FENTANYL TRANSDERMAL SYSTEM [Suspect]
     Active Substance: FENTANYL
     Route: 062
  7. SUBSYS [Suspect]
     Active Substance: FENTANYL
     Indication: OSTEOARTHRITIS
  8. SUBSYS [Suspect]
     Active Substance: FENTANYL
     Indication: CONNECTIVE TISSUE DISORDER
  9. NORCO [Suspect]
     Active Substance: ACETAMINOPHEN\HYDROCODONE BITARTRATE
     Indication: PAIN MANAGEMENT

REACTIONS (11)
  - Intestinal obstruction [Unknown]
  - Intentional product use issue [Unknown]
  - Disability [Unknown]
  - Pain [Unknown]
  - Anhedonia [Unknown]
  - Injury [Unknown]
  - Condition aggravated [Unknown]
  - Drug dependence [Unknown]
  - Emotional distress [Unknown]
  - Drug withdrawal syndrome [Unknown]
  - Deformity [Unknown]
